FAERS Safety Report 18606209 (Version 3)
Quarter: 2022Q2

REPORT INFORMATION
  Report Type: Spontaneous
  Country: US (occurrence: US)
  Receive Date: 20201211
  Receipt Date: 20220519
  Transmission Date: 20220720
  Serious: No
  Sender: FDA-Public Use
  Company Number: US-PFIZER INC-2020487930

PATIENT
  Age: 66 Year
  Sex: Female

DRUGS (2)
  1. IBRANCE [Suspect]
     Active Substance: PALBOCICLIB
     Dosage: 75 MG
  2. IBRANCE [Suspect]
     Active Substance: PALBOCICLIB
     Dosage: 75 MG, CYCLIC (TAKE MONDAY-FRIDAY WEEKLY WITH SATURDAY AND SUNDAY OFF)
     Route: 048

REACTIONS (5)
  - Off label use [Unknown]
  - Depressed mood [Unknown]
  - Anxiety [Unknown]
  - Crying [Unknown]
  - Visual impairment [Unknown]
